FAERS Safety Report 9638097 (Version 5)
Quarter: 2014Q1

REPORT INFORMATION
  Report Type: Spontaneous
  Country: US (occurrence: US)
  Receive Date: 20131022
  Receipt Date: 20140107
  Transmission Date: 20141002
  Serious: No
  Sender: FDA-Public Use
  Company Number: US-PFIZER INC-2013300061

PATIENT
  Age: 56 Year
  Sex: Female
  Weight: 81.2 kg

DRUGS (6)
  1. XALKORI [Suspect]
     Indication: LUNG NEOPLASM MALIGNANT
     Dosage: 250 MG, UNK
     Dates: start: 20131009
  2. XALKORI [Suspect]
     Dosage: 250 MG, 2X/DAY (TAKE 1 CAPSULE TWICE A DAY BY MOUTH)
     Route: 048
     Dates: start: 20131016
  3. XALKORI [Suspect]
     Dosage: UNK
  4. NORVASC [Concomitant]
     Dosage: UNK
  5. FEOSOL [Concomitant]
     Dosage: UNK
  6. SYNTHROID [Concomitant]
     Dosage: UNK

REACTIONS (11)
  - Diarrhoea [Unknown]
  - Swelling [Not Recovered/Not Resolved]
  - Dysgeusia [Unknown]
  - Nausea [Unknown]
  - Constipation [Unknown]
  - Visual impairment [Unknown]
  - Abdominal distension [Unknown]
  - Oedema peripheral [Unknown]
  - Dyspepsia [Unknown]
  - Local swelling [Unknown]
  - Blood pressure increased [Unknown]
